FAERS Safety Report 15753230 (Version 2)
Quarter: 2018Q4

REPORT INFORMATION
  Report Type: Other
  Country: ES (occurrence: ES)
  Receive Date: 20181222
  Receipt Date: 20181226
  Transmission Date: 20190205
  Serious: Yes (Other)
  Sender: FDA-Public Use
  Company Number: ES-APOTEX-2018AP027756

PATIENT
  Age: 48 Year
  Sex: Female

DRUGS (2)
  1. OMEPRAZOLE. [Suspect]
     Active Substance: OMEPRAZOLE
     Indication: PROPHYLAXIS
     Dosage: 20 MG, EVERY 6 TO 8 HOURS
     Route: 065
  2. OMEPRAZOLE. [Suspect]
     Active Substance: OMEPRAZOLE
     Indication: PRODUCT USED FOR UNKNOWN INDICATION

REACTIONS (4)
  - Intentional overdose [Recovered/Resolved]
  - Intentional product misuse [Recovered/Resolved]
  - Symmetrical drug-related intertriginous and flexural exanthema [Recovered/Resolved]
  - Toxic skin eruption [Recovered/Resolved]
